FAERS Safety Report 21737969 (Version 1)
Quarter: 2022Q4

REPORT INFORMATION
  Report Type: Spontaneous
  Country: US (occurrence: US)
  Receive Date: 20221216
  Receipt Date: 20221216
  Transmission Date: 20230112
  Serious: No
  Sender: FDA-Public Use
  Company Number: US-ENDO PHARMACEUTICALS INC-2022-002470

PATIENT
  Sex: Male
  Weight: 92.971 kg

DRUGS (5)
  1. XIAFLEX [Suspect]
     Active Substance: COLLAGENASE CLOSTRIDIUM HISTOLYTICUM
     Indication: Peyronie^s disease
     Dosage: UNK UNKNOWN, UNKNOWN (INJECTION ONE)
     Route: 065
     Dates: start: 202012
  2. XIAFLEX [Suspect]
     Active Substance: COLLAGENASE CLOSTRIDIUM HISTOLYTICUM
     Dosage: UNK UNKNOWN, UNKNOWN (INJECTION TWO)
     Route: 065
  3. XIAFLEX [Suspect]
     Active Substance: COLLAGENASE CLOSTRIDIUM HISTOLYTICUM
     Dosage: UNK UNKNOWN, UNKNOWN (INJECTION THREE)
     Route: 065
     Dates: start: 202103
  4. GENERIC STATIN [Concomitant]
     Indication: Hypertension
     Dosage: 10 MG, UNKNOWN
     Route: 065
     Dates: start: 2020
  5. GENERIC STATIN [Concomitant]
     Indication: Blood cholesterol increased

REACTIONS (4)
  - Discomfort [Unknown]
  - Drug ineffective [Unknown]
  - Procedural pain [Recovered/Resolved]
  - Inappropriate schedule of product administration [Unknown]
